FAERS Safety Report 13985386 (Version 1)
Quarter: 2017Q3

REPORT INFORMATION
  Report Type: Spontaneous
  Country: US (occurrence: None)
  Receive Date: 20170918
  Receipt Date: 20170918
  Transmission Date: 20171128
  Serious: No
  Sender: FDA-Public Use
  Company Number: None

PATIENT
  Sex: Female

DRUGS (1)
  1. SIMPONI [Suspect]
     Active Substance: GOLIMUMAB
     Indication: COLITIS ULCERATIVE
     Dosage: 200MG AT WEEK 0, THEN 100MG Q4W SQ
     Route: 058
     Dates: start: 20170801, end: 20170914

REACTIONS (3)
  - Agitation [None]
  - Hot flush [None]
  - Depressed mood [None]
